FAERS Safety Report 15833896 (Version 8)
Quarter: 2019Q1

REPORT INFORMATION
  Report Type: Spontaneous
  Country: CZ (occurrence: CZ)
  Receive Date: 20190116
  Receipt Date: 20190311
  Transmission Date: 20190417
  Serious: Yes (Hospitalization, Other)
  Sender: FDA-Public Use
  Company Number: CZ-MYLANLABS-2019M1003320

PATIENT
  Age: 71 Year
  Sex: Male

DRUGS (21)
  1. QUETIAPINE. [Suspect]
     Active Substance: QUETIAPINE
     Dosage: 50 MILLIGRAM, QD
     Route: 048
  2. DUPHALAC [Concomitant]
     Active Substance: LACTULOSE
     Indication: PRODUCT USED FOR UNKNOWN INDICATION
     Dosage: 30 MILLIGRAM, QD
  3. ENTACAPONE. [Concomitant]
     Active Substance: ENTACAPONE
     Dosage: UNK,LEVODOPA/CARBIDOPA/ENTACAPONE (100/50/200 MG, ONE TABLET SIX TIMES DAILY
  4. LEVODOPA/CARBIDOPA/ENTACAPONE ABZ [Concomitant]
     Dosage: UNK, (100/50/200 MG 6X1 TABL   )
     Route: 048
  5. ROPINIROLE. [Concomitant]
     Active Substance: ROPINIROLE
     Dosage: 16 MILLIGRAM, QD, (GRADUALLY DISCONTINUED BY HALF A DOSE EVETY TWO DAYS   )
  6. MIDAZOLAM [Concomitant]
     Active Substance: MIDAZOLAM HYDROCHLORIDE
     Indication: SEDATIVE THERAPY
     Dosage: 5 MILLIGRAM, TOTAL
  7. CARBIDOPA. [Concomitant]
     Active Substance: CARBIDOPA
     Dosage: UNK,LEVODOPA/CARBIDOPA/ENTACAPONE (100/50/200 MG, ONE TABLET SIX TIMES DAILY
  8. TIAPRIDE [Suspect]
     Active Substance: TIAPRIDE
     Indication: PRODUCT USED FOR UNKNOWN INDICATION
     Dosage: UNK
  9. AKINETON [Concomitant]
     Active Substance: BIPERIDEN HYDROCHLORIDE
     Indication: PRODUCT USED FOR UNKNOWN INDICATION
     Dosage: UNK
  10. ISICOM [Concomitant]
     Active Substance: CARBIDOPA\LEVODOPA
     Indication: PRODUCT USED FOR UNKNOWN INDICATION
     Dosage: UNK
     Route: 066
  11. LEVODOPA [Concomitant]
     Active Substance: LEVODOPA
     Dosage: UNK,LEVODOPA/CARBIDOPA/ENTACAPONE (100/50/200 MG, ONE TABLET SIX TIMES DAILY)
  12. QUETIAPINE. [Suspect]
     Active Substance: QUETIAPINE
     Dosage: 25 MILLIGRAMS, UNK
     Route: 048
  13. OXAZEPAM. [Suspect]
     Active Substance: OXAZEPAM
     Indication: PRODUCT USED FOR UNKNOWN INDICATION
     Dosage: UNK
     Route: 065
  14. MADOPAR [Concomitant]
     Active Substance: BENSERAZIDE HYDROCHLORIDE\LEVODOPA
     Indication: PRODUCT USED FOR UNKNOWN INDICATION
     Dosage: UNK
  15. CARBIDOPA/LEVODOPA [Concomitant]
     Active Substance: CARBIDOPA\LEVODOPA
     Dosage: 600 MILLIGRAM, QD, (INCREASED DOSE TO 600 MG/DAY   )
     Route: 048
  16. QUETIAPINE. [Suspect]
     Active Substance: QUETIAPINE
     Indication: PRODUCT USED FOR UNKNOWN INDICATION
     Dosage: 100 MILLIGRAM, QD
     Route: 048
  17. SERTRALINE [Suspect]
     Active Substance: SERTRALINE HYDROCHLORIDE
     Indication: PRODUCT USED FOR UNKNOWN INDICATION
     Dosage: 150 MILLIGRAM, QD
     Route: 065
  18. RIVASTIGMINE. [Concomitant]
     Active Substance: RIVASTIGMINE
     Dosage: 6 MILLIGRAM, QD
  19. VESICARE [Suspect]
     Active Substance: SOLIFENACIN SUCCINATE
     Indication: PRODUCT USED FOR UNKNOWN INDICATION
     Dosage: 10 MILLIGRAM
     Route: 065
  20. CERUCAL [Concomitant]
     Active Substance: METOCLOPRAMIDE HYDROCHLORIDE
     Indication: PRODUCT USED FOR UNKNOWN INDICATION
     Dosage: 30 MILLIGRAM
  21. GENTAMICIN. [Concomitant]
     Active Substance: GENTAMICIN
     Indication: PRODUCT USED FOR UNKNOWN INDICATION
     Dosage: UNK

REACTIONS (20)
  - Loss of consciousness [Recovered/Resolved]
  - Memory impairment [Recovering/Resolving]
  - Restlessness [Recovering/Resolving]
  - Psychomotor retardation [Recovering/Resolving]
  - Delirium [Recovering/Resolving]
  - Aggression [Recovering/Resolving]
  - Stupor [Recovering/Resolving]
  - Confusional state [Recovering/Resolving]
  - Pneumonia [Unknown]
  - Parkinson^s disease [Unknown]
  - Seizure [Recovering/Resolving]
  - Somnolence [Recovering/Resolving]
  - Psychotic disorder [Unknown]
  - Gait inability [Recovering/Resolving]
  - Mobility decreased [Unknown]
  - Depression [Unknown]
  - Hallucination, visual [Recovering/Resolving]
  - Drug effect incomplete [Unknown]
  - Incontinence [Recovered/Resolved]
  - Dyskinesia [Recovering/Resolving]
